FAERS Safety Report 12776581 (Version 1)
Quarter: 2016Q3

REPORT INFORMATION
  Report Type: Spontaneous
  Country: GB (occurrence: GB)
  Receive Date: 20160923
  Receipt Date: 20160923
  Transmission Date: 20161109
  Serious: Yes (Hospitalization, Other)
  Sender: FDA-Public Use
  Company Number: GB-MYLANLABS-2016M1039848

PATIENT

DRUGS (3)
  1. WELLWOMAN [Suspect]
     Active Substance: FOLIC ACID\IRON\MINERALS\VITAMINS
     Dosage: UNK
     Dates: start: 201605, end: 20160824
  2. ALAQUET XL 300 MG PROLONGED-RELEASE TABLETS [Suspect]
     Active Substance: QUETIAPINE FUMARATE
     Indication: BIPOLAR DISORDER
     Dosage: 300 MG, UNK (INCREASE TO 450MG)
     Route: 048
     Dates: start: 201501, end: 201602
  3. ALAQUET XL 300 MG PROLONGED-RELEASE TABLETS [Suspect]
     Active Substance: QUETIAPINE FUMARATE
     Dosage: 450 MG, UNK (RESTARTED)
     Route: 048
     Dates: start: 201602

REACTIONS (14)
  - Nasal congestion [Recovering/Resolving]
  - Sedation [Recovering/Resolving]
  - Drug interaction [Unknown]
  - Obstructive airways disorder [Recovering/Resolving]
  - Irritability [Recovering/Resolving]
  - Dysphagia [Recovering/Resolving]
  - Dry throat [Not Recovered/Not Resolved]
  - Sleep apnoea syndrome [Recovering/Resolving]
  - Dyspnoea [Recovering/Resolving]
  - Sleep terror [Recovering/Resolving]
  - Dry eye [Not Recovered/Not Resolved]
  - Palpitations [Recovering/Resolving]
  - Menstruation irregular [Not Recovered/Not Resolved]
  - Dry mouth [Recovering/Resolving]

NARRATIVE: CASE EVENT DATE: 20160514
